FAERS Safety Report 14057036 (Version 4)
Quarter: 2018Q3

REPORT INFORMATION
  Report Type: Report from Study
  Country: CA (occurrence: CA)
  Receive Date: 20171006
  Receipt Date: 20180726
  Transmission Date: 20181010
  Serious: Yes (Other)
  Sender: FDA-Public Use
  Company Number: PHHY2017CA146089

PATIENT
  Age: 45 Year
  Sex: Female

DRUGS (1)
  1. GILENYA [Suspect]
     Active Substance: FINGOLIMOD HYDROCHLORIDE
     Indication: PRODUCT USED FOR UNKNOWN INDICATION
     Dosage: UNK
     Route: 048
     Dates: start: 20170928, end: 20180612

REACTIONS (15)
  - Back pain [Unknown]
  - Oral herpes [Unknown]
  - Vulvovaginal mycotic infection [Unknown]
  - Nausea [Recovered/Resolved]
  - Decreased appetite [Unknown]
  - Diarrhoea [Unknown]
  - Oral candidiasis [Unknown]
  - Concomitant disease aggravated [Unknown]
  - Cardiac flutter [Unknown]
  - Asthenia [Unknown]
  - Dizziness [Recovered/Resolved]
  - Gastrointestinal disorder [Recovered/Resolved]
  - Fatigue [Unknown]
  - Depression [Recovered/Resolved]
  - Constipation [Unknown]

NARRATIVE: CASE EVENT DATE: 2017
